FAERS Safety Report 7503713-8 (Version None)
Quarter: 2011Q2

REPORT INFORMATION
  Report Type: 
  Country: None (occurrence: None)
  Receive Date: 20110525
  Receipt Date: 20110514
  Transmission Date: 20111010
  Serious: Yes (Hospitalization, Other)
  Sender: FDA-Public Use
  Company Number: FR-BAYER-2011-021071

PATIENT
  Age: 25 Year
  Sex: Male

DRUGS (2)
  1. ULTRAVIST 150 [Suspect]
     Indication: COMPUTERISED TOMOGRAM
     Dosage: 10 ML, ONCE
     Route: 042
     Dates: start: 20110224, end: 20110224
  2. XYLOCAINE [Suspect]
     Indication: COMPUTERISED TOMOGRAM
     Dosage: 2 ML, ONCE
     Route: 042
     Dates: start: 20110224, end: 20110224

REACTIONS (4)
  - ARTHRITIS [None]
  - ARTHRALGIA [None]
  - PYREXIA [None]
  - FEELING HOT [None]
